FAERS Safety Report 19618701 (Version 1)
Quarter: 2021Q3

REPORT INFORMATION
  Report Type: Spontaneous
  Country: US (occurrence: US)
  Receive Date: 20210727
  Receipt Date: 20210727
  Transmission Date: 20211014
  Serious: No
  Sender: FDA-Public Use
  Company Number: US-ROCHE-2806042

PATIENT
  Sex: Female

DRUGS (16)
  1. CAPECITABINE. [Suspect]
     Active Substance: CAPECITABINE
     Indication: PRODUCT USED FOR UNKNOWN INDICATION
     Route: 065
     Dates: start: 20210216, end: 20210309
  2. CYCLOBENZAPRINE. [Concomitant]
     Active Substance: CYCLOBENZAPRINE
  3. ONDANSETRON HCL [Concomitant]
     Active Substance: ONDANSETRON HYDROCHLORIDE
  4. ACIDOPHILUS PROBIOTIC [Concomitant]
     Active Substance: LACTOBACILLUS ACIDOPHILUS
  5. DEXAMETHASONE. [Concomitant]
     Active Substance: DEXAMETHASONE
  6. FAMOTIDINE. [Concomitant]
     Active Substance: FAMOTIDINE
  7. VITAMIN D3 [Concomitant]
     Active Substance: CHOLECALCIFEROL
  8. HYDROCODONE/ACETAMINOPHEN [Concomitant]
     Active Substance: ACETAMINOPHEN\HYDROCODONE
  9. ASPIRIN. [Concomitant]
     Active Substance: ASPIRIN
  10. KETOCONAZOLE. [Concomitant]
     Active Substance: KETOCONAZOLE
  11. TUMS [Concomitant]
     Active Substance: CALCIUM CARBONATE
  12. CAPECITABINE. [Suspect]
     Active Substance: CAPECITABINE
     Route: 065
  13. TUKYSA [Suspect]
     Active Substance: TUCATINIB
     Indication: BREAST CANCER
     Route: 065
     Dates: end: 20210309
  14. HERCEPTIN [Suspect]
     Active Substance: TRASTUZUMAB
     Indication: PRODUCT USED FOR UNKNOWN INDICATION
     Route: 065
  15. IBUPROFEN. [Concomitant]
     Active Substance: IBUPROFEN
  16. MELATONIN [Concomitant]
     Active Substance: MELATONIN

REACTIONS (1)
  - Palmar-plantar erythrodysaesthesia syndrome [Not Recovered/Not Resolved]
